FAERS Safety Report 5866197-1 (Version None)
Quarter: 2008Q3

REPORT INFORMATION
  Report Type: 
  Country: None (occurrence: None)
  Receive Date: 20080829
  Receipt Date: 20080826
  Transmission Date: 20090109
  Serious: Yes (Hospitalization)
  Sender: FDA-Public Use
  Company Number: US-MERCK-0808USA01199

PATIENT
  Age: 15 Year
  Sex: Female

DRUGS (8)
  1. SINGULAIR [Suspect]
     Indication: ASTHMA
     Route: 048
     Dates: start: 20060407
  2. SINGULAIR [Suspect]
     Indication: HYPERSENSITIVITY
     Route: 048
     Dates: start: 20060407
  3. LEXAPRO [Concomitant]
     Route: 065
     Dates: start: 20060725, end: 20070301
  4. LEXAPRO [Concomitant]
     Route: 048
     Dates: start: 20070325, end: 20080405
  5. STRATTERA [Concomitant]
     Route: 048
     Dates: start: 20060101, end: 20080405
  6. ABILIFY [Concomitant]
     Route: 048
     Dates: start: 20060101, end: 20080405
  7. SINGULAIR [Suspect]
     Route: 048
     Dates: end: 20080405
  8. SINGULAIR [Suspect]
     Route: 048
     Dates: end: 20080405

REACTIONS (7)
  - ABNORMAL BEHAVIOUR [None]
  - BELLIGERENCE [None]
  - DEPRESSION [None]
  - INTENTIONAL SELF-INJURY [None]
  - OVERDOSE [None]
  - SCHIZOPHRENIA [None]
  - SUICIDE ATTEMPT [None]
